FAERS Safety Report 26163035 (Version 1)
Quarter: 2025Q4

REPORT INFORMATION
  Report Type: Spontaneous
  Country: US (occurrence: US)
  Receive Date: 20251216
  Receipt Date: 20251216
  Transmission Date: 20260118
  Serious: No
  Sender: TEVA
  Company Number: US-TEVA-VS-3401124

PATIENT
  Age: 59 Year
  Sex: Female
  Weight: 58.96 kg

DRUGS (1)
  1. METRONIDAZOLE [Suspect]
     Active Substance: METRONIDAZOLE
     Indication: Pruritus
     Dosage: 75
     Route: 065
     Dates: start: 20251121

REACTIONS (1)
  - Therapeutic product effect incomplete [Unknown]
